FAERS Safety Report 4844527-7 (Version None)
Quarter: 2005Q4

REPORT INFORMATION
  Report Type: 
  Country: None (occurrence: None)
  Receive Date: 20051130
  Receipt Date: 20051130
  Transmission Date: 20060501
  Serious: Yes (Death)
  Sender: FDA-Public Use
  Company Number: None

PATIENT
  Sex: Male
  Weight: 75.5 kg

DRUGS (3)
  1. ZOLADEX [Suspect]
     Indication: PROSTATE CANCER
     Dosage: 3.6MG IM Q MONTH FOR 8 CYCLES (7 MONTHS)
     Route: 030
     Dates: start: 20050601, end: 20050601
  2. ZOLADEX [Suspect]
     Indication: PROSTATE CANCER
     Dosage: 3.6MG IM Q MONTH FOR 8 CYCLES (7 MONTHS)
     Route: 030
     Dates: start: 20041215
  3. CASODEX [Suspect]
     Dosage: 50 MG PO DAILY FOR 8 CYCLES (7 MONTHS)
     Route: 048
     Dates: start: 20050601, end: 20050603

REACTIONS (2)
  - ACUTE MYOCARDIAL INFARCTION [None]
  - CORONARY ARTERY DISEASE [None]
